FAERS Safety Report 9059479 (Version 2)
Quarter: 2013Q2

REPORT INFORMATION
  Report Type: Other
  Country: US (occurrence: US)
  Receive Date: 20130211
  Receipt Date: 20130409
  Transmission Date: 20140414
  Serious: Yes (Death)
  Sender: FDA-Public Use
  Company Number: US-SHIRE-ALL1-2013-00228

PATIENT
  Age: 75 Year
  Sex: Male

DRUGS (1)
  1. LIALDA [Suspect]
     Indication: PRODUCT USED FOR UNKNOWN INDICATION
     Dosage: 2.4 G, 1X/DAY:QD (TWO 1.2 G TABLETS DAILY)
     Route: 048

REACTIONS (1)
  - Death [Fatal]
